FAERS Safety Report 6660600-5 (Version None)
Quarter: 2010Q1

REPORT INFORMATION
  Report Type: 
  Country: None (occurrence: None)
  Receive Date: 20100326
  Receipt Date: 20100317
  Transmission Date: 20100710
  Serious: Yes (Death)
  Sender: FDA-Public Use
  Company Number: 008889

PATIENT
  Sex: Female

DRUGS (3)
  1. KEPPRA [Suspect]
     Indication: EPILEPSY
     Dosage: (500 MG BID ORAL)
     Dates: start: 20091118, end: 20100101
  2. DEPAKINE CHRONO /01294701/ (DEPAKINE CHRONO) (NOT SPECIFIED) [Suspect]
     Indication: EPILEPSY
     Dosage: (500 MG BID ORAL)
     Route: 048
     Dates: start: 20070101, end: 20100101
  3. TOPIRAMATE [Suspect]
     Indication: EPILEPSY
     Dosage: (100 MG BID ORAL)
     Route: 048
     Dates: start: 20090731, end: 20100101

REACTIONS (1)
  - SUDDEN DEATH [None]
